FAERS Safety Report 6546974-4 (Version None)
Quarter: 2010Q1

REPORT INFORMATION
  Report Type: 
  Country: None (occurrence: None)
  Receive Date: 20100122
  Receipt Date: 20100118
  Transmission Date: 20100710
  Serious: Yes (Other)
  Sender: FDA-Public Use
  Company Number: A0840571A

PATIENT
  Sex: Male

DRUGS (1)
  1. REQUIP [Suspect]
     Indication: DRUG USE FOR UNKNOWN INDICATION
     Dosage: 1MG UNKNOWN
     Route: 065

REACTIONS (2)
  - NEOPLASM [None]
  - OESOPHAGEAL DISORDER [None]
